FAERS Safety Report 16354515 (Version 3)
Quarter: 2019Q2

REPORT INFORMATION
  Report Type: Report from Study
  Country: FR (occurrence: FR)
  Receive Date: 20190524
  Receipt Date: 20190603
  Transmission Date: 20190711
  Serious: Yes (Other)
  Sender: FDA-Public Use
  Company Number: FR-BAYER-2019-096609

PATIENT
  Age: 65 Year
  Sex: Female

DRUGS (8)
  1. OXYNORM [Concomitant]
     Active Substance: OXYCODONE HYDROCHLORIDE
     Indication: CHEST PAIN
     Dosage: 5 MG, PRN
     Route: 048
     Dates: start: 20190322, end: 20190514
  2. MAGNESIUM;PYRIDOXINE [Concomitant]
     Indication: ABDOMINAL PAIN
     Dosage: 1 DF, TID
     Route: 048
     Dates: start: 20190423
  3. LAROTRECTINIB [Suspect]
     Active Substance: LAROTRECTINIB
     Indication: BREAST CANCER
     Dosage: UNK
     Route: 048
     Dates: end: 20190514
  4. OXYCONTIN [Concomitant]
     Active Substance: OXYCODONE HYDROCHLORIDE
     Indication: CHEST PAIN
     Dosage: 10 MG, BID
     Route: 048
     Dates: start: 20190322, end: 20190514
  5. TRIFLUCAN [Concomitant]
     Active Substance: FLUCONAZOLE
     Indication: ORAL FUNGAL INFECTION
     Dosage: 1 MOUTHWASH AS NEEDED
     Route: 061
  6. VITAMIN D3 [Concomitant]
     Active Substance: CHOLECALCIFEROL
     Indication: PROPHYLAXIS
     Dosage: 1 DF
     Route: 048
     Dates: start: 2018
  7. LAROTRECTINIB [Suspect]
     Active Substance: LAROTRECTINIB
     Indication: BREAST CANCER
     Dosage: 75 MG, BID
     Route: 048
     Dates: start: 20190529
  8. PARACETAMOL [Concomitant]
     Active Substance: ACETAMINOPHEN
     Indication: BONE PAIN
     Dosage: 1 G, PRN
     Route: 048
     Dates: start: 2019, end: 20190514

REACTIONS (1)
  - Hepatitis [Recovered/Resolved]

NARRATIVE: CASE EVENT DATE: 20190514
